FAERS Safety Report 11885070 (Version 1)
Quarter: 2016Q1

REPORT INFORMATION
  Report Type: Spontaneous
  Country: FR (occurrence: FR)
  Receive Date: 20160104
  Receipt Date: 20160104
  Transmission Date: 20160526
  Serious: Yes (Hospitalization)
  Sender: FDA-Public Use
  Company Number: FR-B. BRAUN MEDICAL INC.-1046081

PATIENT
  Age: 26 Year
  Sex: Male

DRUGS (6)
  1. METRONIDAZOLE. [Suspect]
     Active Substance: METRONIDAZOLE
     Indication: PERITONITIS
     Route: 042
     Dates: start: 20151120, end: 20151125
  2. TRAMADOL HYDROCHLORIDE. [Suspect]
     Active Substance: TRAMADOL HYDROCHLORIDE
     Route: 042
     Dates: start: 20151120, end: 20151122
  3. PARACETAMOL [Suspect]
     Active Substance: ACETAMINOPHEN
     Route: 042
     Dates: start: 20151120, end: 20151125
  4. ACUPAN( NEFOPAM) [Concomitant]
     Dates: start: 20151120, end: 20151122
  5. CEFTRIAXONE. [Suspect]
     Active Substance: CEFTRIAXONE
     Route: 042
     Dates: start: 20151120, end: 20151125
  6. GENTAMICINE [Suspect]
     Active Substance: GENTAMICIN
     Route: 042
     Dates: start: 20151121, end: 20151123

REACTIONS (2)
  - Transaminases increased [None]
  - Hepatocellular injury [None]
